FAERS Safety Report 6370699-1 (Version None)
Quarter: 2009Q3

REPORT INFORMATION
  Report Type: 
  Country: None (occurrence: None)
  Receive Date: 20090923
  Receipt Date: 20070604
  Transmission Date: 20100115
  Serious: Yes (Hospitalization)
  Sender: FDA-Public Use
  Company Number: US-ASTRAZENECA-2006UW25228

PATIENT
  Age: 14891 Day
  Sex: Female
  Weight: 113.4 kg

DRUGS (14)
  1. SEROQUEL [Suspect]
     Indication: DEPRESSION
     Dosage: 25-200 MG DAILY
     Route: 048
     Dates: start: 19990722
  2. SEROQUEL [Suspect]
     Indication: SCHIZOPHRENIA
     Dosage: 25-200 MG DAILY
     Route: 048
     Dates: start: 19990722
  3. SEROQUEL [Suspect]
     Route: 048
  4. SEROQUEL [Suspect]
     Route: 048
  5. ZOLOFT [Concomitant]
     Indication: DEPRESSION
  6. GLIPIZIDE [Concomitant]
  7. LOTREL [Concomitant]
     Indication: HYPERTENSION
  8. DOXAZOSIN MESYLATE [Concomitant]
  9. ALBUTEROL [Concomitant]
     Indication: ASTHMA
  10. PROZAC [Concomitant]
     Dates: start: 19990721
  11. TRAZODONE HCL [Concomitant]
     Dates: start: 19990721
  12. ZESTRIL [Concomitant]
     Dates: start: 19991001
  13. VERAPAMIL [Concomitant]
     Dates: start: 19990623
  14. SERZONE [Concomitant]
     Dates: start: 20000314

REACTIONS (1)
  - DIABETES MELLITUS [None]
